FAERS Safety Report 13971849 (Version 1)
Quarter: 2017Q3

REPORT INFORMATION
  Report Type: Spontaneous
  Country: US (occurrence: US)
  Receive Date: 20170914
  Receipt Date: 20170914
  Transmission Date: 20171128
  Serious: No
  Sender: FDA-Public Use
  Company Number: None

PATIENT
  Age: 74 Year
  Sex: Female

DRUGS (1)
  1. ROSUVASTATIN. [Suspect]
     Active Substance: ROSUVASTATIN
     Indication: BLOOD CHOLESTEROL INCREASED
     Route: 048
     Dates: start: 20170109, end: 20170914

REACTIONS (3)
  - Blood cholesterol increased [None]
  - Drug effect decreased [None]
  - Low density lipoprotein increased [None]

NARRATIVE: CASE EVENT DATE: 20170109
